FAERS Safety Report 7919012-6 (Version None)
Quarter: 2011Q4

REPORT INFORMATION
  Report Type: 
  Country: None (occurrence: None)
  Receive Date: 20111116
  Receipt Date: 20111111
  Transmission Date: 20120403
  Serious: Yes (Life-Threatening, Other)
  Sender: FDA-Public Use
  Company Number: US-ASTRAZENECA-2010SE31596

PATIENT
  Age: 52 Year
  Sex: Female

DRUGS (4)
  1. NEXIUM [Suspect]
     Indication: GASTROOESOPHAGEAL REFLUX DISEASE
     Route: 048
  2. METFORMIN HCL [Concomitant]
  3. OMEPRAZOLE [Concomitant]
     Route: 048
  4. CALCIUM CARBONATE [Concomitant]

REACTIONS (19)
  - CARDIAC FAILURE CONGESTIVE [None]
  - NECK PAIN [None]
  - DRUG DOSE OMISSION [None]
  - BILE DUCT OBSTRUCTION [None]
  - DYSPHAGIA [None]
  - CONSTIPATION [None]
  - CHEST PAIN [None]
  - OSTEOARTHRITIS [None]
  - SUICIDE ATTEMPT [None]
  - DIABETES MELLITUS [None]
  - HEADACHE [None]
  - ADRENAL CARCINOMA [None]
  - GASTRITIS [None]
  - COUGH [None]
  - MUSCLE STRAIN [None]
  - SLEEP DISORDER DUE TO GENERAL MEDICAL CONDITION, INSOMNIA TYPE [None]
  - VOMITING [None]
  - DIARRHOEA [None]
  - MALAISE [None]
